FAERS Safety Report 7036875-X (Version None)
Quarter: 2010Q4

REPORT INFORMATION
  Report Type: 
  Country: None (occurrence: None)
  Receive Date: 20101011
  Receipt Date: 20100929
  Transmission Date: 20110411
  Serious: Yes (Hospitalization)
  Sender: FDA-Public Use
  Company Number: US-JNJFOC-20100808796

PATIENT
  Sex: Female
  Weight: 52.16 kg

DRUGS (6)
  1. STELARA [Suspect]
     Indication: PSORIASIS
     Route: 058
  2. ATENOLOL [Concomitant]
     Route: 048
  3. LISINOPRIL [Concomitant]
     Route: 048
  4. PRAVASTATIN [Concomitant]
     Route: 048
  5. ASPIRIN [Concomitant]
  6. PRASUGREL [Concomitant]

REACTIONS (1)
  - MYOCARDIAL INFARCTION [None]
